FAERS Safety Report 12313460 (Version 5)
Quarter: 2016Q4

REPORT INFORMATION
  Report Type: Spontaneous
  Country: JP (occurrence: JP)
  Receive Date: 20160428
  Receipt Date: 20161230
  Transmission Date: 20170207
  Serious: Yes (Hospitalization)
  Sender: FDA-Public Use
  Company Number: JP-009507513-1604JPN015474

PATIENT
  Age: 71 Year
  Sex: Female

DRUGS (1)
  1. DEXAMETHASONE. [Suspect]
     Active Substance: DEXAMETHASONE
     Dosage: DAILY DOSE 4MG
     Route: 048

REACTIONS (2)
  - Blood glucose increased [Recovering/Resolving]
  - Pulmonary embolism [Unknown]
